FAERS Safety Report 17225579 (Version 2)
Quarter: 2020Q1

REPORT INFORMATION
  Report Type: Spontaneous
  Country: US (occurrence: US)
  Receive Date: 20200102
  Receipt Date: 20200110
  Transmission Date: 20200409
  Serious: Yes (Other)
  Sender: FDA-Public Use
  Company Number: US-FARMAPROD-201911-1898

PATIENT
  Sex: Female

DRUGS (2)
  1. OXERVATE [Suspect]
     Active Substance: CENEGERMIN-BKBJ
     Route: 047
     Dates: start: 20191230
  2. OXERVATE [Suspect]
     Active Substance: CENEGERMIN-BKBJ
     Indication: NEUROTROPHIC KERATOPATHY
     Route: 047

REACTIONS (8)
  - Facial pain [Unknown]
  - Ear pain [Unknown]
  - Eye irritation [Unknown]
  - Eye pain [Unknown]
  - Pain of skin [Unknown]
  - Blindness [Unknown]
  - Product dose omission [Unknown]
  - Vision blurred [Unknown]
